FAERS Safety Report 8344428-6 (Version None)
Quarter: 2012Q2

REPORT INFORMATION
  Report Type: 
  Country: None (occurrence: None)
  Receive Date: 20120508
  Receipt Date: 20120502
  Transmission Date: 20120825
  Serious: Yes (Hospitalization)
  Sender: FDA-Public Use
  Company Number: US-BAYER-2011-115701

PATIENT
  Age: 18 Year
  Sex: Female
  Weight: 63.492 kg

DRUGS (13)
  1. FLUTICASONE FUROATE [Concomitant]
     Route: 045
  2. PAXIL [Concomitant]
  3. LORAZEPAM [Concomitant]
  4. FOLIC ACID [Concomitant]
  5. MARIJUANA [Concomitant]
     Dosage: UNK
  6. YASMIN [Suspect]
     Indication: MENSTRUAL CYCLE MANAGEMENT
     Dosage: UNK
     Dates: start: 20020101, end: 20020101
  7. FLOVENT [Concomitant]
  8. ATROVENT [Concomitant]
  9. ALBUTEROL [Concomitant]
  10. TRAZODONE HCL [Concomitant]
  11. BACTRIM [Concomitant]
  12. SEREVENT [Concomitant]
  13. WELLBUTRIN [Concomitant]

REACTIONS (7)
  - PAIN [None]
  - DEPRESSION [None]
  - EMOTIONAL DISTRESS [None]
  - MENTAL DISORDER [None]
  - PULMONARY EMBOLISM [None]
  - GENERAL PHYSICAL HEALTH DETERIORATION [None]
  - ANXIETY [None]
